FAERS Safety Report 5400834-0 (Version None)
Quarter: 2007Q3

REPORT INFORMATION
  Report Type: 
  Country: None (occurrence: None)
  Receive Date: 20070730
  Receipt Date: 20070718
  Transmission Date: 20080115
  Serious: Yes (Hospitalization, Other)
  Sender: FDA-Public Use
  Company Number: DE-PFIZER INC-2007060476

PATIENT
  Sex: Male

DRUGS (1)
  1. LYRICA [Suspect]
     Dosage: DAILY DOSE:600MG
     Route: 048

REACTIONS (7)
  - DISTURBANCE IN ATTENTION [None]
  - DIZZINESS [None]
  - HALLUCINATION [None]
  - HYPONATRAEMIA [None]
  - SKIN HAEMORRHAGE [None]
  - VISUAL DISTURBANCE [None]
  - VOMITING [None]
